FAERS Safety Report 7793169-2 (Version None)
Quarter: 2011Q4

REPORT INFORMATION
  Report Type: 
  Country: None (occurrence: None)
  Receive Date: 20111003
  Receipt Date: 20110926
  Transmission Date: 20120403
  Serious: Yes (Death, Other)
  Sender: FDA-Public Use
  Company Number: US-ROXANE LABORATORIES, INC.-2011-RO-01368RO

PATIENT
  Age: 88 Year
  Sex: Female

DRUGS (2)
  1. CYCLOPHOSPHAMIDE [Suspect]
     Indication: ACQUIRED HAEMOPHILIA
  2. RITUXIMAB [Suspect]
     Indication: ACQUIRED HAEMOPHILIA
     Route: 042

REACTIONS (2)
  - DEATH [None]
  - NEUTROPENIA [None]
